FAERS Safety Report 9682537 (Version 1)
Quarter: 2013Q4

REPORT INFORMATION
  Report Type: Spontaneous
  Country: US (occurrence: US)
  Receive Date: 20131112
  Receipt Date: 20131112
  Transmission Date: 20140711
  Serious: No
  Sender: FDA-Public Use
  Company Number: US-009507513-1311USA003509

PATIENT
  Sex: Female

DRUGS (2)
  1. SAPHRIS [Suspect]
     Dosage: 10 MG, UNK
  2. SAPHRIS [Suspect]
     Dosage: 5 MG, UNK

REACTIONS (1)
  - Sedation [Recovering/Resolving]
